FAERS Safety Report 11475280 (Version 2)
Quarter: 2015Q4

REPORT INFORMATION
  Report Type: Report from Study
  Country: US (occurrence: US)
  Receive Date: 20150909
  Receipt Date: 20151123
  Transmission Date: 20160304
  Serious: No
  Sender: FDA-Public Use
  Company Number: US-AMGEN-USASL2015091218

PATIENT
  Age: 48 Year
  Sex: Male

DRUGS (1)
  1. ENBREL [Suspect]
     Active Substance: ETANERCEPT
     Indication: PSORIASIS
     Dosage: 50 MG, 1QWEEK
     Route: 065
     Dates: start: 20150220

REACTIONS (7)
  - Joint stiffness [Unknown]
  - Joint crepitation [Unknown]
  - Psoriasis [Unknown]
  - Arthralgia [Unknown]
  - Condition aggravated [Unknown]
  - Infection [Unknown]
  - Musculoskeletal stiffness [Unknown]

NARRATIVE: CASE EVENT DATE: 2015
